FAERS Safety Report 10069332 (Version 7)
Quarter: 2014Q4

REPORT INFORMATION
  Report Type: Spontaneous
  Country: ES (occurrence: ES)
  Receive Date: 20140409
  Receipt Date: 20141208
  Transmission Date: 20150528
  Serious: Yes (Other)
  Sender: FDA-Public Use
  Company Number: ES-AMGEN INC.-ESPSP2014014059

PATIENT
  Age: 69 Year
  Sex: Male

DRUGS (7)
  1. ENBREL [Suspect]
     Active Substance: ETANERCEPT
     Indication: PSORIATIC ARTHROPATHY
     Dosage: 50 MG, ONCE WEEKLY (ON MONDAYS)
     Route: 058
     Dates: start: 20140112
  2. ESPIDIFEN [Concomitant]
     Active Substance: IBUPROFEN
     Indication: PAIN
     Dosage: 1 DF, 3X/DAY,ONE DF EVERY 8 HOURS (HE TOOK IT IF HE HAD PAIN)
  3. ENBREL [Suspect]
     Active Substance: ETANERCEPT
     Dosage: 50 MG, ONCE WEEKLY
     Route: 058
  4. NOLOTIL                            /06276702/ [Concomitant]
     Indication: PAIN
     Dosage: 1 DF, 3X/DAY (ONE DF EVERY 8 HOURS)
  5. ENBREL [Suspect]
     Active Substance: ETANERCEPT
     Dosage: 50 MG, ONCE WEEKLY
     Route: 058
  6. METOJECT [Concomitant]
     Active Substance: METHOTREXATE SODIUM
     Indication: PSORIATIC ARTHROPATHY
     Dosage: ONE INJECTION, EVERY THURSDAY
  7. CORTISONE [Concomitant]
     Active Substance: CORTISONE\HYDROCORTISONE
     Indication: PSORIATIC ARTHROPATHY
     Dosage: 1 DF, DAILY

REACTIONS (12)
  - Psoriatic arthropathy [Unknown]
  - Arthropathy [Not Recovered/Not Resolved]
  - Secretion discharge [Recovered/Resolved]
  - Drug effect incomplete [Unknown]
  - Nasopharyngitis [Recovered/Resolved]
  - Skin exfoliation [Unknown]
  - Eyelid oedema [Recovering/Resolving]
  - Injection site discomfort [Not Recovered/Not Resolved]
  - Hypersensitivity [Unknown]
  - Injection site pain [Not Recovered/Not Resolved]
  - Tinnitus [Recovered/Resolved]
  - Post-traumatic neck syndrome [Not Recovered/Not Resolved]

NARRATIVE: CASE EVENT DATE: 2014
